FAERS Safety Report 7549639-5 (Version None)
Quarter: 2011Q2

REPORT INFORMATION
  Report Type: 
  Country: None (occurrence: None)
  Receive Date: 20110615
  Receipt Date: 20110603
  Transmission Date: 20111010
  Serious: No
  Sender: FDA-Public Use
  Company Number: US-JNJFOC-20110602591

PATIENT
  Sex: Male

DRUGS (2)
  1. INVEGA SUSTENNA [Suspect]
     Indication: PRODUCT USED FOR UNKNOWN INDICATION
     Route: 030
     Dates: start: 20100101, end: 20100101
  2. INVEGA SUSTENNA [Suspect]
     Route: 030
     Dates: start: 20110101, end: 20110101

REACTIONS (3)
  - PRODUCT QUALITY ISSUE [None]
  - PHOTOPHOBIA [None]
  - PHOTOSENSITIVITY REACTION [None]
